FAERS Safety Report 15722233 (Version 1)
Quarter: 2018Q4

REPORT INFORMATION
  Report Type: Spontaneous
  Country: JP (occurrence: JP)
  Receive Date: 20181214
  Receipt Date: 20181214
  Transmission Date: 20190205
  Serious: Yes (Other)
  Sender: FDA-Public Use
  Company Number: JP-GLAXOSMITHKLINE-JP2018JPN223145

PATIENT

DRUGS (3)
  1. SAMTIREL [Suspect]
     Active Substance: ATOVAQUONE
     Dosage: 2 PACKS, UNK
     Route: 048
     Dates: start: 20181121
  2. SAMTIREL [Suspect]
     Active Substance: ATOVAQUONE
     Dosage: 1 PACK, UNK
     Route: 048
  3. BAKTAR [Concomitant]
     Active Substance: SULFAMETHOXAZOLE\TRIMETHOPRIM
     Indication: PROPHYLAXIS
     Dosage: UNK
     Dates: end: 20181121

REACTIONS (1)
  - Cytopenia [Unknown]
